FAERS Safety Report 20175428 (Version 3)
Quarter: 2025Q1

REPORT INFORMATION
  Report Type: Report from Study
  Country: KR (occurrence: KR)
  Receive Date: 20211213
  Receipt Date: 20250112
  Transmission Date: 20250408
  Serious: Yes (Death, Other)
  Sender: GLAXOSMITHKLINE
  Company Number: KR-TAKEDA-2021TJP008191

PATIENT

DRUGS (12)
  1. NIRAPARIB [Suspect]
     Active Substance: NIRAPARIB
     Indication: Fallopian tube cancer
     Dosage: 200 MILLIGRAM, QD
     Route: 048
     Dates: start: 20201005, end: 20210215
  2. NIRAPARIB [Suspect]
     Active Substance: NIRAPARIB
     Indication: Ovarian cancer recurrent
  3. NIRAPARIB [Suspect]
     Active Substance: NIRAPARIB
     Indication: Ovarian cancer
  4. NIRAPARIB [Suspect]
     Active Substance: NIRAPARIB
     Indication: Malignant peritoneal neoplasm
  5. LYRICA [Concomitant]
     Active Substance: PREGABALIN
     Indication: Prophylaxis
     Dosage: 300 MILLIGRAM, BID
     Route: 048
     Dates: start: 20200531
  6. LEVOTHYROXINE SODIUM [Concomitant]
     Active Substance: LEVOTHYROXINE SODIUM
     Indication: Thyroid cancer
     Dosage: 100 MICROGRAM, QD
     Route: 048
     Dates: start: 20080701
  7. SOLONDO [Concomitant]
     Indication: Dermatomyositis
     Dosage: 5 MILLIGRAM, QD
     Route: 048
     Dates: start: 20190419
  8. DICAMAX [Concomitant]
     Indication: Calcium deficiency
     Dosage: UNK, QD
     Route: 048
     Dates: start: 20200820
  9. CALTEO [Concomitant]
     Indication: Osteoporosis
     Dosage: 750 MILLIGRAM, BID
     Route: 048
     Dates: start: 2021
  10. TAZOPERAN [Concomitant]
     Indication: Pneumonitis
     Dosage: UNK UNK, QID
     Route: 042
     Dates: start: 20210217, end: 20210309
  11. SULFAMETHOXAZOLE\TRIMETHOPRIM [Concomitant]
     Active Substance: SULFAMETHOXAZOLE\TRIMETHOPRIM
     Indication: Pneumonitis
     Dosage: UNK UNK, QD
     Route: 048
     Dates: start: 20210218, end: 20210311
  12. LEVOFLOXACIN [Concomitant]
     Active Substance: LEVOFLOXACIN
     Indication: Pneumonitis
     Dosage: UNK UNK, QD
     Route: 042
     Dates: start: 20210217, end: 20210225

REACTIONS (1)
  - Pneumonitis [Fatal]

NARRATIVE: CASE EVENT DATE: 20210217
